FAERS Safety Report 10458105 (Version 1)
Quarter: 2014Q3

REPORT INFORMATION
  Report Type: Spontaneous
  Country: CA (occurrence: CA)
  Receive Date: 20140917
  Receipt Date: 20140917
  Transmission Date: 20150326
  Serious: Yes (Other)
  Sender: FDA-Public Use
  Company Number: CA-AUROBINDO-AUR-APL-2014-09865

PATIENT
  Age: 37 Year
  Sex: Female

DRUGS (1)
  1. TOPIRAMATE 100MG ZYDUS [Suspect]
     Active Substance: TOPIRAMATE
     Indication: PRODUCT USED FOR UNKNOWN INDICATION
     Dosage: 100 MG, TWO TIMES A DAY
     Route: 065

REACTIONS (2)
  - Drug ineffective [Recovered/Resolved]
  - Convulsion [Recovered/Resolved]
